FAERS Safety Report 5077927-3 (Version None)
Quarter: 2006Q3

REPORT INFORMATION
  Report Type: 
  Country: None (occurrence: None)
  Receive Date: 20060808
  Receipt Date: 20060725
  Transmission Date: 20061208
  Serious: Yes (Other)
  Sender: FDA-Public Use
  Company Number: CAN-2006-0000328

PATIENT
  Age: 70 Year
  Sex: Female

DRUGS (3)
  1. MORPHINE SULFATE [Suspect]
     Indication: CANCER PAIN
     Dosage: 2.5 MG, Q4H, ORAL
     Route: 048
  2. HYDROMORPHONE HYDROCHLORIDE [Suspect]
     Indication: CANCER PAIN
     Dosage: 0.25 MG, Q6H, ORAL
     Route: 048
  3. MEPERIDINE HCL [Suspect]
     Dosage: 50 MG, Q4H
     Dates: start: 20060425

REACTIONS (5)
  - AGITATION [None]
  - BALANCE DISORDER [None]
  - CONFUSIONAL STATE [None]
  - HALLUCINATION [None]
  - SOMNOLENCE [None]
